FAERS Safety Report 18226698 (Version 1)
Quarter: 2020Q3

REPORT INFORMATION
  Report Type: Spontaneous
  Country: US (occurrence: US)
  Receive Date: 20200902
  Receipt Date: 20200902
  Transmission Date: 20201103
  Serious: No
  Sender: FDA-Public Use
  Company Number: None

PATIENT
  Age: 84 Year
  Sex: Male
  Weight: 77.11 kg

DRUGS (12)
  1. IRON INFUSION [Concomitant]
     Active Substance: IRON
  2. MULTIVITAMIN [Concomitant]
     Active Substance: VITAMINS
  3. FUROSEMIDE. [Concomitant]
     Active Substance: FUROSEMIDE
  4. DULCOLAX NOS [Concomitant]
     Active Substance: BISACODYL OR DOCUSATE SODIUM
  5. XALKORI [Suspect]
     Active Substance: CRIZOTINIB
     Indication: LUNG CARCINOMA CELL TYPE UNSPECIFIED STAGE 0
     Route: 048
     Dates: start: 20170613
  6. ELIQUIS [Concomitant]
     Active Substance: APIXABAN
  7. VENTOLIN [Concomitant]
     Active Substance: ALBUTEROL SULFATE
  8. ADVIL [Concomitant]
     Active Substance: IBUPROFEN
  9. XALKORI [Suspect]
     Active Substance: CRIZOTINIB
     Indication: PROSTATE CANCER
     Route: 048
     Dates: start: 20170613
  10. LUPRUN [Concomitant]
  11. PROCRIT [Concomitant]
     Active Substance: ERYTHROPOIETIN
  12. SENNA [Concomitant]
     Active Substance: SENNA LEAF\SENNOSIDES\SENNOSIDES A AND B

REACTIONS (4)
  - Peripheral swelling [None]
  - Haemoglobin decreased [None]
  - Blood iron decreased [None]
  - Constipation [None]

NARRATIVE: CASE EVENT DATE: 20200902
